FAERS Safety Report 22153801 (Version 1)
Quarter: 2023Q1

REPORT INFORMATION
  Report Type: Spontaneous
  Country: HR (occurrence: HR)
  Receive Date: 20230330
  Receipt Date: 20230330
  Transmission Date: 20230417
  Serious: Yes (Other)
  Sender: FDA-Public Use
  Company Number: None

PATIENT

DRUGS (4)
  1. IBUPROFEN [Suspect]
     Active Substance: IBUPROFEN
     Indication: Influenza
     Dosage: UNK, (LARGE UNKNOWN AMOUNTS OF IBUPROFEN)
     Route: 048
     Dates: start: 202302, end: 202302
  2. IBUPROFEN [Suspect]
     Active Substance: IBUPROFEN
     Indication: Pyrexia
  3. ACETAMINOPHEN [Suspect]
     Active Substance: ACETAMINOPHEN
     Indication: Influenza
     Dosage: 10 G, QD, (10G PER DAY)
     Route: 048
     Dates: start: 202302, end: 202302
  4. ACETAMINOPHEN [Suspect]
     Active Substance: ACETAMINOPHEN
     Indication: Pyrexia

REACTIONS (5)
  - Blood creatinine increased [Unknown]
  - Hepatic failure [Unknown]
  - Accidental overdose [Unknown]
  - Transaminases increased [Unknown]
  - Renal failure [Unknown]

NARRATIVE: CASE EVENT DATE: 20230201
